FAERS Safety Report 7417567-1 (Version None)
Quarter: 2011Q2

REPORT INFORMATION
  Report Type: 
  Country: None (occurrence: None)
  Receive Date: 20110415
  Receipt Date: 20110408
  Transmission Date: 20111010
  Serious: Yes (Death, Other)
  Sender: FDA-Public Use
  Company Number: US-ROXANE LABORATORIES, INC.-2011-RO-00495RO

PATIENT
  Age: 20 Year
  Sex: Male

DRUGS (5)
  1. MORPHINE [Suspect]
  2. PROMETHAZINE [Suspect]
  3. PARACETAMOL [Suspect]
  4. PROPYLHEXEDRINE [Suspect]
  5. MITRAGYNINE [Suspect]

REACTIONS (2)
  - TOXICITY TO VARIOUS AGENTS [None]
  - DRUG SCREEN POSITIVE [None]
